FAERS Safety Report 20673456 (Version 1)
Quarter: 2022Q2

REPORT INFORMATION
  Report Type: Spontaneous
  Country: US (occurrence: None)
  Receive Date: 20220403
  Receipt Date: 20220403
  Transmission Date: 20220721
  Serious: No
  Sender: FDA-Public Use
  Company Number: None

PATIENT
  Age: 65 Year
  Sex: Male
  Weight: 113 kg

DRUGS (1)
  1. PEMBROLIZUMAB [Suspect]
     Active Substance: PEMBROLIZUMAB
     Indication: Squamous cell carcinoma
     Dosage: UNKNOWN UD
     Dates: start: 20201102, end: 20201204

REACTIONS (2)
  - Renal tubular necrosis [None]
  - Acute kidney injury [None]

NARRATIVE: CASE EVENT DATE: 20201209
